FAERS Safety Report 11723144 (Version 1)
Quarter: 2015Q4

REPORT INFORMATION
  Report Type: Spontaneous
  Country: US (occurrence: None)
  Receive Date: 20151110
  Receipt Date: 20151110
  Transmission Date: 20160304
  Serious: Yes (Other)
  Sender: FDA-Public Use
  Company Number: None

PATIENT
  Age: 57 Year
  Sex: Male
  Weight: 102.06 kg

DRUGS (9)
  1. GOOD NEIGHBOR PHARMACY NASAL MOISTERING SPRAY-PREMIUM SALINE. COMPARE TO OCEAN INGREDIENTS GOOD NEIGHBOR PHARMACY. DISTRIBUTED BY AMERISOURCE BERGEN WWW.GOODNEIGHBORPHARMAC.COM [Suspect]
     Active Substance: SODIUM CHLORIDE
     Indication: NASAL DRYNESS
     Dosage: SALINE AS NEEDED?TWICE IN EACH NOSTRIL AS NEEDED ?AS NEEDED?NASAL SPRAY
     Route: 045
     Dates: start: 20151024, end: 20151024
  2. JAYLEN [Concomitant]
  3. ALLOPURINOL. [Concomitant]
     Active Substance: ALLOPURINOL
  4. SPIROMLACTONE [Concomitant]
  5. JANUMET [Concomitant]
     Active Substance: METFORMIN HYDROCHLORIDE\SITAGLIPTIN PHOSPHATE
  6. KRILL OIL [Concomitant]
     Active Substance: DIETARY SUPPLEMENT
  7. GOOD NEIGHBOR PHARMACY NASAL MOISTERING SPRAY-PREMIUM SALINE. COMPARE TO OCEAN INGREDIENTS GOOD NEIGHBOR PHARMACY. DISTRIBUTED BY AMERISOURCE BERGEN WWW.GOODNEIGHBORPHARMAC.COM [Suspect]
     Active Substance: SODIUM CHLORIDE
     Indication: SINUS CONGESTION
     Dosage: SALINE AS NEEDED?TWICE IN EACH NOSTRIL AS NEEDED ?AS NEEDED?NASAL SPRAY
     Route: 045
     Dates: start: 20151024, end: 20151024
  8. DIAVAN [Concomitant]
     Active Substance: ASCORBIC ACID/ CHROMIUM/ SELENIUM/VANADYL SULFATE
  9. GLIPIZIDE. [Concomitant]
     Active Substance: GLIPIZIDE

REACTIONS (1)
  - Product odour abnormal [None]

NARRATIVE: CASE EVENT DATE: 20151024
